FAERS Safety Report 14919031 (Version 1)
Quarter: 2018Q2

REPORT INFORMATION
  Report Type: Spontaneous
  Country: US (occurrence: US)
  Receive Date: 20180521
  Receipt Date: 20180521
  Transmission Date: 20180711
  Serious: Yes (Hospitalization, Other)
  Sender: FDA-Public Use
  Company Number: US-PFIZER INC-2018202672

PATIENT
  Age: 61 Year
  Sex: Male

DRUGS (1)
  1. ALPRAZOLAM. [Suspect]
     Active Substance: ALPRAZOLAM
     Indication: ANXIETY
     Dosage: UNK

REACTIONS (5)
  - Counterfeit product administered [Unknown]
  - Generalised tonic-clonic seizure [Unknown]
  - Loss of personal independence in daily activities [Unknown]
  - Product counterfeit [Unknown]
  - Wrist fracture [Unknown]
